FAERS Safety Report 18252528 (Version 1)
Quarter: 2020Q3

REPORT INFORMATION
  Report Type: Spontaneous
  Country: CA (occurrence: CA)
  Receive Date: 20200910
  Receipt Date: 20200910
  Transmission Date: 20201103
  Serious: Yes (Other)
  Sender: FDA-Public Use
  Company Number: CA-ACCORD-200102

PATIENT
  Sex: Male

DRUGS (2)
  1. BRODALUMAB [Suspect]
     Active Substance: BRODALUMAB
     Indication: PRODUCT USED FOR UNKNOWN INDICATION
     Route: 065
  2. METHOTREXATE. [Suspect]
     Active Substance: METHOTREXATE
     Indication: PRODUCT USED FOR UNKNOWN INDICATION
     Route: 065

REACTIONS (12)
  - Dizziness postural [Unknown]
  - Productive cough [Unknown]
  - Flatulence [Unknown]
  - Tearfulness [Unknown]
  - Fatigue [Unknown]
  - Anaemia [Unknown]
  - Feeling cold [Unknown]
  - Musculoskeletal chest pain [Unknown]
  - Dyspnoea [Unknown]
  - Nausea [Unknown]
  - Decreased appetite [Unknown]
  - Poisoning [Unknown]
